FAERS Safety Report 6687651-9 (Version None)
Quarter: 2010Q2

REPORT INFORMATION
  Report Type: 
  Country: None (occurrence: None)
  Receive Date: 20100415
  Receipt Date: 20100401
  Transmission Date: 20101027
  Serious: Yes (Other)
  Sender: FDA-Public Use
  Company Number: 009043

PATIENT
  Sex: 0

DRUGS (1)
  1. PROSTAGLANDIN E1 (PROSTAGLANDIN E1) [Suspect]

REACTIONS (1)
  - OBSTRUCTION GASTRIC [None]
